FAERS Safety Report 9299040 (Version 2)
Quarter: 2013Q3

REPORT INFORMATION
  Report Type: Report from Study
  Country: US (occurrence: US)
  Receive Date: 20130520
  Receipt Date: 20130826
  Transmission Date: 20140515
  Serious: Yes (Other)
  Sender: FDA-Public Use
  Company Number: US-ABBOTT-13P-163-1089559-00

PATIENT
  Age: 21 Year
  Sex: Female
  Weight: 79.45 kg

DRUGS (13)
  1. HUMIRA [Suspect]
     Indication: RHEUMATOID ARTHRITIS
     Dates: start: 2009, end: 201210
  2. HUMIRA [Suspect]
     Dates: start: 20121214
  3. LEVETIRACETAM [Suspect]
     Indication: CONVULSION
     Dates: start: 20130404
  4. METHOTREXATE [Concomitant]
     Indication: RHEUMATOID ARTHRITIS
     Dosage: SQUIRTS IN JUICE INSTEAD OF INJECTION
     Route: 048
  5. LODINE [Concomitant]
     Indication: PRODUCT USED FOR UNKNOWN INDICATION
  6. POLY-IRON [Concomitant]
     Indication: PRODUCT USED FOR UNKNOWN INDICATION
  7. FOLIC ACID [Concomitant]
     Indication: VITAMIN SUPPLEMENTATION
  8. XANAX [Concomitant]
     Indication: ANXIETY
  9. ZOLPIDEM [Concomitant]
     Indication: SLEEP DISORDER
     Dosage: AS NEEDED AT BEDTIME
  10. PLAQUENIL [Concomitant]
     Indication: PRODUCT USED FOR UNKNOWN INDICATION
  11. CETIRIZINE [Concomitant]
     Indication: SEASONAL ALLERGY
  12. HYDROXYCHLOROQUINE [Concomitant]
     Indication: RHEUMATOID ARTHRITIS
  13. MONTELUKAST SODIUM [Concomitant]
     Indication: SEASONAL ALLERGY

REACTIONS (11)
  - Dyskinesia [Not Recovered/Not Resolved]
  - Fall [Not Recovered/Not Resolved]
  - Aphasia [Recovered/Resolved]
  - Convulsion [Not Recovered/Not Resolved]
  - Umbilical hernia [Recovered/Resolved]
  - Fibromyalgia [Not Recovered/Not Resolved]
  - Abdominal pain [Recovered/Resolved]
  - Fatigue [Not Recovered/Not Resolved]
  - Arthralgia [Not Recovered/Not Resolved]
  - Somnolence [Not Recovered/Not Resolved]
  - Dyskinesia [Recovered/Resolved]
